FAERS Safety Report 25021371 (Version 6)
Quarter: 2025Q3

REPORT INFORMATION
  Report Type: Report from Study
  Country: US (occurrence: US)
  Receive Date: 20250228
  Receipt Date: 20250820
  Transmission Date: 20251021
  Serious: Yes (Hospitalization, Other)
  Sender: UCB
  Company Number: US-UCBSA-2024052581

PATIENT
  Age: 14 Year
  Sex: Male
  Weight: 42.2 kg

DRUGS (6)
  1. FINTEPLA [Suspect]
     Active Substance: FENFLURAMINE
     Indication: Lennox-Gastaut syndrome
     Dates: start: 20220413
  2. FINTEPLA [Suspect]
     Active Substance: FENFLURAMINE
     Indication: Seizure
     Dosage: 5.9 MILLILITER, 2X/DAY (BID)
     Dates: start: 20220624
  3. FINTEPLA [Suspect]
     Active Substance: FENFLURAMINE
     Dosage: 5.9 MILLILITER, 2X/DAY (BID) (26 MILLIGRAM DAILY)
  4. FINTEPLA [Suspect]
     Active Substance: FENFLURAMINE
  5. BRIVIACT [Concomitant]
     Active Substance: BRIVARACETAM
     Indication: Seizure
     Dosage: 8 MILLILITER, 2X/DAY (BID)
  6. FYCOMPA [Concomitant]
     Active Substance: PERAMPANEL
     Indication: Seizure
     Dosage: 8 MILLILITER, 2X/DAY (BID)
     Dates: start: 2023

REACTIONS (5)
  - Gastrointestinal disorder [Recovered/Resolved]
  - Pericardial effusion [Not Recovered/Not Resolved]
  - Femur fracture [Recovered/Resolved]
  - Aortic dilatation [Not Recovered/Not Resolved]
  - Weight decreased [Not Recovered/Not Resolved]

NARRATIVE: CASE EVENT DATE: 20241004
